FAERS Safety Report 11255681 (Version 8)
Quarter: 2017Q1

REPORT INFORMATION
  Report Type: Spontaneous
  Country: US (occurrence: US)
  Receive Date: 20150709
  Receipt Date: 20170315
  Transmission Date: 20170428
  Serious: Yes (Hospitalization, Other)
  Sender: FDA-Public Use
  Company Number: US-DSJP-DSU-2015-120672

PATIENT
  Age: 33 Year
  Sex: Male
  Weight: 95 kg

DRUGS (7)
  1. TYLENOL [Concomitant]
     Active Substance: ACETAMINOPHEN
     Indication: PAIN
     Dosage: 325 MG, ONCE EVERY 4HR
     Route: 048
     Dates: start: 2005
  2. TYLENOL [Concomitant]
     Active Substance: ACETAMINOPHEN
     Indication: BODY TEMPERATURE INCREASED
  3. BENICAR [Suspect]
     Active Substance: OLMESARTAN MEDOXOMIL
     Dosage: 40 MG, QD
     Route: 048
  4. HYDROCODONE [Concomitant]
     Active Substance: HYDROCODONE
     Indication: PAIN
     Dosage: 7.5-325 MG, PRN
     Route: 048
     Dates: start: 2005
  5. BENICAR [Suspect]
     Active Substance: OLMESARTAN MEDOXOMIL
     Indication: HYPERTENSION
     Dosage: 60 MG, QD, 1.5 TABLETS PER DAY
     Route: 048
     Dates: start: 20090206, end: 201504
  6. BENICAR [Suspect]
     Active Substance: OLMESARTAN MEDOXOMIL
     Dosage: 20 MG, UNK
  7. BENICAR HCT [Suspect]
     Active Substance: HYDROCHLOROTHIAZIDE\OLMESARTAN MEDOXOMIL
     Indication: HYPERTENSION
     Dosage: 40/12.5 MG, QD
     Route: 048
     Dates: start: 2002, end: 20090204

REACTIONS (12)
  - Gastrooesophageal reflux disease [Not Recovered/Not Resolved]
  - Depression [Recovered/Resolved]
  - Dizziness [Recovered/Resolved]
  - End stage renal disease [Not Recovered/Not Resolved]
  - Malabsorption [Not Recovered/Not Resolved]
  - Irritable bowel syndrome [Unknown]
  - Acute kidney injury [Recovering/Resolving]
  - Anaemia [Unknown]
  - Gouty arthritis [Not Recovered/Not Resolved]
  - Drug administration error [Unknown]
  - Hiatus hernia [Unknown]
  - Dyspnoea [Recovered/Resolved]

NARRATIVE: CASE EVENT DATE: 200601
